FAERS Safety Report 12661451 (Version 2)
Quarter: 2016Q3

REPORT INFORMATION
  Report Type: Report from Study
  Country: BR (occurrence: BR)
  Receive Date: 20160817
  Receipt Date: 20160818
  Transmission Date: 20161109
  Serious: Yes (Death, Hospitalization)
  Sender: FDA-Public Use
  Company Number: PHHY2016BR112348

PATIENT
  Age: 97 Year
  Sex: Female
  Weight: 49 kg

DRUGS (3)
  1. EXELON [Suspect]
     Active Substance: RIVASTIGMINE TARTRATE
     Indication: CEREBROVASCULAR DISORDER
     Dosage: QD
     Route: 048
  2. EXELON PATCH [Suspect]
     Active Substance: RIVASTIGMINE
     Indication: CEREBROVASCULAR DISORDER
     Dosage: (PATCH 10 CM2) 9.5 MG, QD
     Route: 062
     Dates: end: 20160715
  3. MAREVAN [Concomitant]
     Active Substance: WARFARIN SODIUM
     Indication: HAEMODILUTION
     Dosage: 1 DF, QD
     Route: 048
     Dates: end: 20160715

REACTIONS (7)
  - Respiratory disorder [Fatal]
  - Dysphagia [Unknown]
  - Pneumonia [Fatal]
  - Wrong technique in product usage process [Unknown]
  - Dyspnoea [Fatal]
  - Pleural effusion [Fatal]
  - Product use issue [Unknown]

NARRATIVE: CASE EVENT DATE: 20160715
